FAERS Safety Report 4935564-2 (Version None)
Quarter: 2006Q1

REPORT INFORMATION
  Report Type: 
  Country: None (occurrence: None)
  Receive Date: 20060307
  Receipt Date: 20050906
  Transmission Date: 20060701
  Serious: No
  Sender: FDA-Public Use
  Company Number: US-GLAXOSMITHKLINE-A0573118A

PATIENT
  Age: 59 Year
  Sex: Female

DRUGS (3)
  1. REQUIP [Suspect]
     Indication: PARKINSON'S DISEASE
     Dosage: 1MG THREE TIMES PER DAY
     Route: 048
  2. BLOOD PRESSURE MEDICATION [Concomitant]
  3. LEVODOPA [Concomitant]

REACTIONS (3)
  - DIZZINESS [None]
  - HEART RATE INCREASED [None]
  - SOMNOLENCE [None]
